FAERS Safety Report 21741937 (Version 1)
Quarter: 2022Q4

REPORT INFORMATION
  Report Type: Spontaneous
  Country: ES (occurrence: ES)
  Receive Date: 20221216
  Receipt Date: 20221216
  Transmission Date: 20230112
  Serious: Yes (Hospitalization)
  Sender: FDA-Public Use
  Company Number: ES-MYLANLABS-2022M1140260

PATIENT
  Age: 77 Year
  Sex: Female

DRUGS (8)
  1. OLANZAPINE [Suspect]
     Active Substance: OLANZAPINE
     Indication: Delusion of replacement
     Dosage: 5 MILLIGRAM
     Route: 065
  2. HALOPERIDOL [Suspect]
     Active Substance: HALOPERIDOL
     Indication: Delusion of replacement
     Dosage: 2.5 MILLIGRAM
     Route: 065
  3. PREGABALIN [Concomitant]
     Active Substance: PREGABALIN
     Indication: Obsessive-compulsive disorder
     Dosage: 75 MILLIGRAM, Q8H
     Route: 065
  4. PREGABALIN [Concomitant]
     Active Substance: PREGABALIN
     Indication: Obsessive-compulsive personality disorder
  5. ALPRAZOLAM [Concomitant]
     Active Substance: ALPRAZOLAM
     Indication: Obsessive-compulsive disorder
     Dosage: 0.5 MILLIGRAM, Q8H
     Route: 065
  6. ALPRAZOLAM [Concomitant]
     Active Substance: ALPRAZOLAM
     Indication: Obsessive-compulsive personality disorder
  7. PAROXETINE [Concomitant]
     Active Substance: PAROXETINE
     Indication: Obsessive-compulsive disorder
     Dosage: 20 MILLIGRAM, QD
     Route: 065
  8. PAROXETINE [Concomitant]
     Active Substance: PAROXETINE
     Indication: Obsessive-compulsive personality disorder

REACTIONS (2)
  - Drug ineffective for unapproved indication [Unknown]
  - Off label use [Unknown]
